FAERS Safety Report 24257109 (Version 1)
Quarter: 2024Q3

REPORT INFORMATION
  Report Type: Spontaneous
  Country: CO (occurrence: CO)
  Receive Date: 20240828
  Receipt Date: 20240828
  Transmission Date: 20241017
  Serious: Yes (Death, Hospitalization, Other)
  Sender: RANBAXY
  Company Number: CO-SUN PHARMACEUTICAL INDUSTRIES LTD-2024R1-442118

PATIENT
  Age: 71 Year
  Sex: Female

DRUGS (4)
  1. IMATINIB [Suspect]
     Active Substance: IMATINIB
     Indication: Chronic myeloid leukaemia
     Dosage: 400 MILLIGRAM, DAILY
     Route: 048
     Dates: start: 20200728, end: 20240731
  2. LEVOTHYROXINE [Concomitant]
     Active Substance: LEVOTHYROXINE\LEVOTHYROXINE SODIUM
     Indication: Hypothyroidism
     Dosage: UNK
     Route: 065
  3. LEVADOPA/CARBIDOPA [Concomitant]
     Indication: Parkinson^s disease
     Dosage: UNK
     Route: 065
  4. AMANTIDIN [Concomitant]
     Indication: Parkinson^s disease
     Dosage: UNK
     Route: 065

REACTIONS (3)
  - Cardio-respiratory arrest [Fatal]
  - Fluid retention [Unknown]
  - Vomiting [Unknown]

NARRATIVE: CASE EVENT DATE: 20240402
